FAERS Safety Report 25799368 (Version 2)
Quarter: 2025Q4

REPORT INFORMATION
  Report Type: Spontaneous
  Country: US (occurrence: None)
  Receive Date: 20250913
  Receipt Date: 20251118
  Transmission Date: 20260117
  Serious: Yes (Other)
  Sender: UCB
  Company Number: US-UCBSA-2025055944

PATIENT
  Age: 55 Year

DRUGS (2)
  1. BIMZELX [Suspect]
     Active Substance: BIMEKIZUMAB-BKZX
     Indication: Hidradenitis
     Dosage: 160 MILLIGRAM, EV 4 WEEKS
  2. BIMZELX [Suspect]
     Active Substance: BIMEKIZUMAB-BKZX
     Indication: Ankylosing spondylitis

REACTIONS (6)
  - Ankylosing spondylitis [Unknown]
  - Hidradenitis [Unknown]
  - Condition aggravated [Unknown]
  - Burning sensation [Recovered/Resolved]
  - Myalgia [Recovering/Resolving]
  - Off label use [Unknown]
